FAERS Safety Report 19315561 (Version 4)
Quarter: 2025Q4

REPORT INFORMATION
  Report Type: Spontaneous
  Country: EU (occurrence: None)
  Receive Date: 20210527
  Receipt Date: 20251031
  Transmission Date: 20260118
  Serious: Yes (Hospitalization, Other)
  Sender: ENDO
  Company Number: EU-ENDO PHARMACEUTICALS INC-2021-007796

PATIENT
  Age: 46 Year
  Sex: Male
  Weight: 107 kg

DRUGS (14)
  1. AVEED [Suspect]
     Active Substance: TESTOSTERONE UNDECANOATE
     Indication: Androgen deficiency
     Dosage: 1 DOSAGE FORM, 1ST INJECTION
     Route: 065
     Dates: start: 200901, end: 200901
  2. AVEED [Suspect]
     Active Substance: TESTOSTERONE UNDECANOATE
     Dosage: 1 DOSAGE FORM, 2ND INJECTION
     Route: 065
     Dates: start: 200902, end: 200902
  3. AVEED [Suspect]
     Active Substance: TESTOSTERONE UNDECANOATE
     Dosage: 1 DOSAGE FORM, 3RD INJECTION
     Route: 065
     Dates: start: 200905, end: 200905
  4. AVEED [Suspect]
     Active Substance: TESTOSTERONE UNDECANOATE
     Dosage: 1 DF, ONCE
     Route: 065
     Dates: start: 2017, end: 2017
  5. AVEED [Suspect]
     Active Substance: TESTOSTERONE UNDECANOATE
     Dosage: UNKNOWN, 10-11 WEEK INTERVAL
     Route: 065
  6. AVEED [Suspect]
     Active Substance: TESTOSTERONE UNDECANOATE
     Dosage: UNKNOWN, 6-8 WEEK INTERVAL
     Route: 065
  7. AVEED [Suspect]
     Active Substance: TESTOSTERONE UNDECANOATE
     Dosage: UNK UNKNOWN, UNKNOWN
     Route: 065
  8. AVEED [Suspect]
     Active Substance: TESTOSTERONE UNDECANOATE
     Dosage: UNK UNKNOWN, UNKNOWN
     Route: 065
  9. AVEED [Suspect]
     Active Substance: TESTOSTERONE UNDECANOATE
     Dosage: 1 DOSAGE FORM, ONCE
     Route: 065
     Dates: start: 20210803, end: 20210803
  10. AVEED [Suspect]
     Active Substance: TESTOSTERONE UNDECANOATE
     Dosage: 1 DOSAGE FORM, ONCE
     Route: 065
     Dates: start: 202110, end: 202110
  11. RICINUS COMMUNIS SEED OIL [Suspect]
     Active Substance: CASTOR OIL
     Indication: Product used for unknown indication
     Dosage: UNK UNKNOWN, UNKNOWN
     Route: 065
  12. SILDENAFIL [Concomitant]
     Active Substance: SILDENAFIL
     Indication: Erectile dysfunction
     Dosage: UNK UNKNOWN, UNKNOWN
     Route: 065
  13. TESTOSTERONE [Concomitant]
     Active Substance: TESTOSTERONE
     Indication: Product used for unknown indication
     Dosage: UNK UNKNOWN, UNKNOWN
     Route: 065
  14. ALFUZOSIN [Concomitant]
     Active Substance: ALFUZOSIN
     Indication: Product used for unknown indication
     Dosage: UNK UNKNOWN, UNKNOWN
     Route: 065

REACTIONS (21)
  - Urinary retention [Recovered/Resolved]
  - Weight decreased [Recovered/Resolved]
  - Reaction to excipient [Recovered/Resolved]
  - Chromaturia [Recovered/Resolved]
  - Ureterolithiasis [Recovering/Resolving]
  - Urine odour abnormal [Recovering/Resolving]
  - Increased appetite [Recovered/Resolved]
  - Therapeutic response unexpected [Recovered/Resolved]
  - Nephrolithiasis [Recovering/Resolving]
  - Calculus urinary [Recovered/Resolved]
  - Urinary tract disorder [Recovered/Resolved]
  - Blood triglycerides increased [Recovered/Resolved]
  - Hyperhidrosis [Recovered/Resolved]
  - Therapeutic response shortened [Recovered/Resolved]
  - Back pain [Unknown]
  - Injection site pain [Recovered/Resolved]
  - Renal pain [Recovered/Resolved]
  - Dysuria [Recovering/Resolving]
  - Wrong technique in product usage process [Recovered/Resolved]
  - Product prescribing issue [Recovered/Resolved]
  - Off label use [Recovered/Resolved]

NARRATIVE: CASE EVENT DATE: 20090101
